FAERS Safety Report 5683980-6 (Version None)
Quarter: 2008Q1

REPORT INFORMATION
  Report Type: 
  Country: None (occurrence: None)
  Receive Date: 20080328
  Receipt Date: 20080325
  Transmission Date: 20080703
  Serious: Yes (Hospitalization, Other)
  Sender: FDA-Public Use
  Company Number: PHNU2008DE01376

PATIENT
  Sex: Male

DRUGS (2)
  1. BISOPROLOL FUMARATE [Concomitant]
     Dosage: 5 MG/D
     Dates: start: 20070301
  2. DIOVAN HCT [Suspect]
     Indication: HYPERTENSION
     Dosage: 1 DF, QD
     Dates: start: 20030101

REACTIONS (14)
  - AORTIC VALVE INCOMPETENCE [None]
  - ARTHRALGIA [None]
  - ATRIAL FIBRILLATION [None]
  - BLOOD PRESSURE FLUCTUATION [None]
  - BLOOD URIC ACID INCREASED [None]
  - CATHETERISATION CARDIAC [None]
  - CORONARY ARTERY DISEASE [None]
  - DIZZINESS [None]
  - GAMMA-GLUTAMYLTRANSFERASE INCREASED [None]
  - MITRAL VALVE INCOMPETENCE [None]
  - NASAL INFLAMMATION [None]
  - PHARYNGEAL INFLAMMATION [None]
  - RENAL FAILURE [None]
  - VISUAL DISTURBANCE [None]
